FAERS Safety Report 7732875-2 (Version None)
Quarter: 2011Q3

REPORT INFORMATION
  Report Type: 
  Country: None (occurrence: None)
  Receive Date: 20110817
  Receipt Date: 20110303
  Transmission Date: 20111222
  Serious: Yes (Other)
  Sender: FDA-Public Use
  Company Number: 20109851

PATIENT
  Sex: Male

DRUGS (3)
  1. FENTANYL [Concomitant]
  2. BUPIVICAINE [Concomitant]
  3. LIORESAL [Suspect]
     Indication: MUSCLE SPASTICITY
     Dosage: DAILY, INTRATHECAL
     Route: 037

REACTIONS (2)
  - HYPOAESTHESIA [None]
  - BACK PAIN [None]
